FAERS Safety Report 9911637 (Version 1)
Quarter: 2014Q1

REPORT INFORMATION
  Report Type: Spontaneous
  Country: JP (occurrence: JP)
  Receive Date: 20140219
  Receipt Date: 20140219
  Transmission Date: 20141002
  Serious: Yes (Hospitalization)
  Sender: FDA-Public Use
  Company Number: PHHY2014JP015599

PATIENT
  Age: 50 Year
  Sex: Female

DRUGS (8)
  1. THEOPHYLLINE [Suspect]
     Indication: ASTHMA
     Dosage: 400 MG, PER DAY
  2. SALMETEROL [Suspect]
     Indication: ASTHMA
     Dosage: 100 UG, PER DAY
  3. FLUTICASONE [Suspect]
     Indication: ASTHMA
     Dosage: 1000 UG, PER DAY
  4. MONTELUKAST SODIUM [Suspect]
     Dosage: 10 MG, PER DAY
  5. AMINOPHYLLINE [Concomitant]
     Indication: ASTHMA
     Route: 042
  6. CORTICOSTEROIDS [Concomitant]
     Indication: ASTHMA
     Route: 042
  7. OMALIZUMAB [Concomitant]
     Indication: ASTHMA
     Dosage: 150 MG/KG, ONCE IN TWO WEEKS
  8. OMALIZUMAB [Concomitant]
     Indication: OFF LABEL USE

REACTIONS (2)
  - Asthma [Unknown]
  - Drug ineffective [Unknown]
